FAERS Safety Report 5287977-X (Version None)
Quarter: 2007Q2

REPORT INFORMATION
  Report Type: 
  Country: None (occurrence: None)
  Receive Date: 20070405
  Receipt Date: 20070328
  Transmission Date: 20071010
  Serious: Yes (Disabling)
  Sender: FDA-Public Use
  Company Number: JP-JNJFOC-20070306277

PATIENT
  Age: 64 Year
  Sex: Male
  Weight: 59 kg

DRUGS (19)
  1. LEVOFLOXACIN [Suspect]
     Indication: GASTROENTERITIS
     Route: 048
  2. BUSCOPAN [Concomitant]
     Route: 048
  3. BIO THREE [Concomitant]
     Route: 065
  4. EURODIN [Concomitant]
     Route: 048
  5. EURODIN [Concomitant]
     Indication: INSOMNIA
     Route: 048
  6. TAGAMET [Concomitant]
     Route: 048
  7. TAGAMET [Concomitant]
     Route: 048
  8. TAGAMET [Concomitant]
     Indication: GASTRITIS
     Route: 048
  9. CEREKINON [Concomitant]
     Route: 048
  10. CEREKINON [Concomitant]
     Route: 048
  11. CEREKINON [Concomitant]
     Indication: GASTRITIS
     Route: 048
  12. GASTROM [Concomitant]
     Route: 065
  13. GASTROM [Concomitant]
     Route: 065
  14. GASTROM [Concomitant]
     Indication: GASTRITIS
     Route: 065
  15. STROCAIN [Concomitant]
     Route: 065
  16. STROCAIN [Concomitant]
     Route: 065
  17. STROCAIN [Concomitant]
     Indication: GASTRITIS
     Route: 065
  18. ZENOL [Concomitant]
     Indication: TENOSYNOVITIS
     Route: 048
  19. RIVOTRIL [Concomitant]
     Route: 065

REACTIONS (6)
  - CONVULSION [None]
  - DIZZINESS [None]
  - FEELING HOT [None]
  - HYPERHIDROSIS [None]
  - THIRST [None]
  - TREMOR [None]
